FAERS Safety Report 8550136 (Version 8)
Quarter: 2014Q1

REPORT INFORMATION
  Report Type: Report from Study
  Country: JP (occurrence: JP)
  Receive Date: 20120507
  Receipt Date: 20140310
  Transmission Date: 20141002
  Serious: Yes (Hospitalization, Other)
  Sender: FDA-Public Use
  Company Number: JP-VERTEX PHARMACEUTICAL INC.-AE-2012-006213

PATIENT
  Age: 65 Year
  Sex: Male

DRUGS (17)
  1. VX-950 (TELAPREVIR) [Suspect]
     Indication: CHRONIC HEPATITIS C
     Dosage: 2250 MG, QD
     Route: 048
     Dates: start: 20120216, end: 20120426
  2. PEGINTRON [Suspect]
     Indication: CHRONIC HEPATITIS C
     Dosage: 1.5 ?G/KG, QW
     Route: 058
     Dates: start: 20120216, end: 20120726
  3. REBETOL [Suspect]
     Indication: CHRONIC HEPATITIS C
     Dosage: 800 MG, QD
     Route: 048
     Dates: start: 20120216, end: 20120315
  4. REBETOL [Suspect]
     Dosage: 600 MG, QD
     Route: 048
     Dates: start: 20120316, end: 20120404
  5. REBETOL [Suspect]
     Dosage: 400 MG, QD
     Route: 048
     Dates: start: 20120405, end: 20120801
  6. AMLODIPINE [Concomitant]
     Dosage: 5 MG, QD
     Route: 048
  7. MAINHEART [Concomitant]
     Dosage: 5 MG, QD
     Route: 048
  8. GLIMEPIRIDE [Concomitant]
     Dosage: 3 MG, QD
     Route: 048
     Dates: end: 20120614
  9. GLIMEPIRIDE [Concomitant]
     Dosage: 1 MG, QD
     Route: 048
     Dates: start: 20120615, end: 20120620
  10. GLIMEPIRIDE [Concomitant]
     Dosage: 0.5 MG, QD
     Route: 048
     Dates: start: 20120621, end: 20120628
  11. NELBIS [Concomitant]
     Dosage: 250 MG, QD
     Route: 048
  12. TAKEPRON [Concomitant]
     Dosage: UNK
     Route: 048
     Dates: start: 20120220, end: 20120308
  13. RIKKUNSHITO [Concomitant]
     Dosage: 7.5 MG, QD
     Route: 048
     Dates: start: 20120308
  14. PARIET [Concomitant]
     Dosage: 10 MG, QD
     Route: 048
     Dates: start: 20120426, end: 20120525
  15. HUMALOG [Concomitant]
     Dosage: 16 UT, QD
     Route: 058
     Dates: start: 20120510, end: 20120614
  16. HUMACART N [Concomitant]
     Dosage: 4 UT, QD
     Route: 058
     Dates: start: 20120510, end: 20120523
  17. JANUVIA [Concomitant]
     Dosage: 50 MG, QD
     Route: 048
     Dates: start: 20120629, end: 20120705

REACTIONS (3)
  - White blood cell count decreased [Recovered/Resolved]
  - Drug eruption [Recovering/Resolving]
  - Cellulitis [Recovered/Resolved]
